FAERS Safety Report 13598034 (Version 2)
Quarter: 2017Q2

REPORT INFORMATION
  Report Type: Spontaneous
  Country: DE (occurrence: DE)
  Receive Date: 20170531
  Receipt Date: 20170612
  Transmission Date: 20170830
  Serious: Yes (Hospitalization, Disabling, Other)
  Sender: FDA-Public Use
  Company Number: DE-TEVA-771793GER

PATIENT
  Age: 56 Year
  Sex: Male

DRUGS (5)
  1. NITROFURANTOIN-RATIOPHARM 100 MG RETARDKAPSELN [Suspect]
     Active Substance: NITROFURANTOIN
     Indication: PROPHYLAXIS URINARY TRACT INFECTION
     Dosage: 200 MILLIGRAM DAILY;
     Route: 048
  2. OXYBUTYNIN 0.25 % [Concomitant]
     Indication: BLADDER SPASM
  3. LIORESAL [Concomitant]
     Active Substance: BACLOFEN
     Indication: BLADDER SPASM
     Dosage: 40 MILLIGRAM DAILY;
     Route: 048
  4. FRAGMIN P 2500 [Concomitant]
     Indication: THROMBOSIS PROPHYLAXIS
  5. SPASMEX 15 [Concomitant]
     Indication: BLADDER SPASM
     Dosage: 60 MILLIGRAM DAILY;
     Route: 048

REACTIONS (10)
  - Pulmonary fibrosis [Unknown]
  - Coma [Recovered/Resolved with Sequelae]
  - Dyspnoea [Unknown]
  - Oxygen saturation decreased [Unknown]
  - Fatigue [Unknown]
  - Dizziness [Unknown]
  - Respiratory distress [Unknown]
  - Disturbance in attention [Unknown]
  - Headache [Unknown]
  - Pneumonia [Unknown]

NARRATIVE: CASE EVENT DATE: 201611
